FAERS Safety Report 8499520-2 (Version None)
Quarter: 2012Q2

REPORT INFORMATION
  Report Type: 
  Country: None (occurrence: None)
  Receive Date: 20120505
  Receipt Date: 20100301
  Transmission Date: 20120825
  Serious: Yes (Other)
  Sender: FDA-Public Use
  Company Number: PHEH2010US02811

PATIENT
  Age: 83 Year
  Sex: Female

DRUGS (5)
  1. PREDNISONE TAB [Suspect]
  2. PRAVASTATIN [Concomitant]
  3. FOSAMAX [Concomitant]
  4. RECLAST [Suspect]
     Dates: start: 20100128
  5. LEVOTHYROXINE SODIUM [Concomitant]

REACTIONS (6)
  - URTICARIA [None]
  - RASH GENERALISED [None]
  - INFLUENZA LIKE ILLNESS [None]
  - FEELING ABNORMAL [None]
  - CHILLS [None]
  - ASTHENIA [None]
